FAERS Safety Report 24361633 (Version 4)
Quarter: 2025Q3

REPORT INFORMATION
  Report Type: Spontaneous
  Country: AR (occurrence: AR)
  Receive Date: 20240925
  Receipt Date: 20250912
  Transmission Date: 20251021
  Serious: Yes (Other)
  Sender: SANDOZ
  Company Number: AR-SANDOZ-SDZ2024AR082278

PATIENT
  Sex: Male
  Weight: 33 kg

DRUGS (2)
  1. OMNITROPE [Suspect]
     Active Substance: SOMATROPIN
     Indication: Growth hormone deficiency
     Dosage: 0.9 MG, QD (7 TIMES PER WEEK)
     Route: 058
     Dates: start: 20220313
  2. OMNITROPE [Suspect]
     Active Substance: SOMATROPIN
     Indication: Growth retardation
     Route: 058
     Dates: start: 20220312

REACTIONS (7)
  - Growth retardation [Unknown]
  - Injection site bruising [Unknown]
  - Injection site pain [Unknown]
  - Product use issue [Unknown]
  - Product supply issue [Unknown]
  - Device difficult to use [Unknown]
  - Circumstance or information capable of leading to medication error [Unknown]
